FAERS Safety Report 24293916 (Version 1)
Quarter: 2024Q3

REPORT INFORMATION
  Report Type: Spontaneous
  Country: US (occurrence: None)
  Receive Date: 20240906
  Receipt Date: 20240906
  Transmission Date: 20241016
  Serious: No
  Sender: DOMPE FARMACEUTICI
  Company Number: US-FARMAPROD-202308-202403-0736

PATIENT
  Sex: Female

DRUGS (32)
  1. OXERVATE [Suspect]
     Active Substance: CENEGERMIN-BKBJ
     Indication: Neurotrophic keratopathy
     Route: 047
     Dates: start: 20240219
  2. TYRVAYA [Concomitant]
     Active Substance: VARENICLINE TARTRATE
     Dosage: 0.03/SPRAY
  3. REFRESH DIGITAL PF [Concomitant]
     Active Substance: CARBOXYMETHYLCELLULOSE SODIUM\GLYCERIN\POLYSORBATE 80
  4. VITAMIN E [Concomitant]
     Active Substance: .ALPHA.-TOCOPHEROL
     Dosage: 1000 UNIT
  5. VITAMIN D3 [Concomitant]
     Active Substance: CHOLECALCIFEROL
  6. DIAZEPAM [Concomitant]
     Active Substance: DIAZEPAM
  7. GAS-X [Concomitant]
     Active Substance: DIMETHICONE
  8. MIRALAX [Concomitant]
     Active Substance: POLYETHYLENE GLYCOL 3350
  9. AMLODIPINE BESYLATE [Concomitant]
     Active Substance: AMLODIPINE BESYLATE
  10. FAMOTIDINE [Concomitant]
     Active Substance: FAMOTIDINE
  11. POLYMYXIN B [Concomitant]
     Active Substance: POLYMYXIN B
  12. ARTIFICIAL TEARS [Concomitant]
     Dosage: 0.1%-0.3%
  13. PERFLUOROHEXYLOCTANE [Concomitant]
     Active Substance: PERFLUOROHEXYLOCTANE
  14. ACTHAR [Concomitant]
     Active Substance: CORTICOTROPIN
     Dosage: VIAL
  15. TIZANIDINE HYDROCHLORIDE [Concomitant]
     Active Substance: TIZANIDINE HYDROCHLORIDE
  16. PANTOPRAZOLE SODIUM [Concomitant]
     Active Substance: PANTOPRAZOLE SODIUM
  17. VOLTAREN [Concomitant]
     Active Substance: DICLOFENAC SODIUM
  18. ACETAMINOPHEN\HYDROCODONE [Concomitant]
     Active Substance: ACETAMINOPHEN\HYDROCODONE
  19. QVAR REDIHALER [Concomitant]
     Active Substance: BECLOMETHASONE DIPROPIONATE
     Dosage: HYDROFLUOROALKANE AEROSOL, BREATH ACTIVATED
  20. OMEGA-3 ACIDS [Concomitant]
     Active Substance: OMEGA-3 FATTY ACIDS
  21. LEVALBUTEROL CONCENTRATE [Concomitant]
  22. ATORVASTATIN CALCIUM [Concomitant]
     Active Substance: ATORVASTATIN CALCIUM
  23. ACYCLOVIR [Concomitant]
     Active Substance: ACYCLOVIR
  24. PILOCARPINE HYDROCHLORIDE [Concomitant]
     Active Substance: PILOCARPINE HYDROCHLORIDE
  25. METOPROLOL SUCCINATE [Concomitant]
     Active Substance: METOPROLOL SUCCINATE
  26. MOVANTIK [Concomitant]
     Active Substance: NALOXEGOL OXALATE
  27. GABAPENTIN [Concomitant]
     Active Substance: GABAPENTIN
  28. RESTASIS [Concomitant]
     Active Substance: CYCLOSPORINE
  29. MONTELUKAST SODIUM [Concomitant]
     Active Substance: MONTELUKAST\MONTELUKAST SODIUM
  30. LINZESS [Concomitant]
     Active Substance: LINACLOTIDE
  31. LOTEMAX [Concomitant]
     Active Substance: LOTEPREDNOL ETABONATE
  32. BRIMONIDINE TARTRATE [Concomitant]
     Active Substance: BRIMONIDINE TARTRATE

REACTIONS (5)
  - Eye pain [Unknown]
  - Eyelid pain [Unknown]
  - Eyelid skin dryness [Unknown]
  - Erythema of eyelid [Unknown]
  - Headache [Unknown]
